FAERS Safety Report 22158158 (Version 1)
Quarter: 2023Q1

REPORT INFORMATION
  Report Type: Report from Study
  Country: ES (occurrence: ES)
  Receive Date: 20230330
  Receipt Date: 20230330
  Transmission Date: 20230417
  Serious: Yes (Hospitalization)
  Sender: FDA-Public Use
  Company Number: ES-ABBVIE-4141308

PATIENT
  Age: 67 Year
  Sex: Male
  Weight: 78 kg

DRUGS (2)
  1. CARBIDOPA\LEVODOPA [Suspect]
     Active Substance: CARBIDOPA\LEVODOPA
     Indication: Parkinson^s disease
     Route: 050
     Dates: start: 20181221
  2. CARBIDOPA\LEVODOPA [Suspect]
     Active Substance: CARBIDOPA\LEVODOPA
     Route: 050

REACTIONS (4)
  - Embedded device [Recovered/Resolved]
  - Stoma site odour [Unknown]
  - Stoma site discharge [Unknown]
  - Stoma site infection [Recovering/Resolving]

NARRATIVE: CASE EVENT DATE: 20220920
